FAERS Safety Report 23236271 (Version 1)
Quarter: 2023Q4

REPORT INFORMATION
  Report Type: Spontaneous
  Country: IT (occurrence: IT)
  Receive Date: 20231128
  Receipt Date: 20231128
  Transmission Date: 20240110
  Serious: Yes (Other)
  Sender: FDA-Public Use
  Company Number: IT-SUN PHARMACEUTICAL INDUSTRIES LTD-2023R1-420809

PATIENT
  Age: 86 Year
  Sex: Female

DRUGS (1)
  1. PREDNISONE [Suspect]
     Active Substance: PREDNISONE
     Indication: Hypoglycaemia
     Dosage: 25 MILLIGRAM, DAILY
     Route: 065

REACTIONS (2)
  - Psychotic disorder [Unknown]
  - Hallucination [Unknown]
